FAERS Safety Report 5968845-4 (Version None)
Quarter: 2008Q4

REPORT INFORMATION
  Report Type: 
  Country: None (occurrence: None)
  Receive Date: 20081125
  Receipt Date: 20081125
  Transmission Date: 20090506
  Serious: Yes (Other)
  Sender: FDA-Public Use
  Company Number: None

PATIENT
  Sex: Female
  Weight: 53.0709 kg

DRUGS (2)
  1. RISPERDAL [Suspect]
     Indication: ANGER
     Dosage: ONE HALF MG 2X PER DAY PO
     Route: 048
     Dates: start: 20080801, end: 20081120
  2. RISPERDAL [Suspect]
     Indication: DEPRESSION
     Dosage: ONE HALF MG 2X PER DAY PO
     Route: 048
     Dates: start: 20080801, end: 20081120

REACTIONS (23)
  - ABDOMINAL PAIN UPPER [None]
  - AGGRESSION [None]
  - ANGER [None]
  - CHOKING [None]
  - CONSTIPATION [None]
  - CREPITATIONS [None]
  - DROOLING [None]
  - DRUG WITHDRAWAL SYNDROME [None]
  - DYSPHAGIA [None]
  - DYSURIA [None]
  - EMOTIONAL DISTRESS [None]
  - FLUID INTAKE REDUCED [None]
  - GRAND MAL CONVULSION [None]
  - HEADACHE [None]
  - HYPERTENSION [None]
  - HYPOPHAGIA [None]
  - INSOMNIA [None]
  - IRRITABILITY [None]
  - MALAISE [None]
  - MUSCLE SPASMS [None]
  - SKIN WARM [None]
  - UNEVALUABLE EVENT [None]
  - VERBAL ABUSE [None]
